FAERS Safety Report 11749343 (Version 2)
Quarter: 2016Q1

REPORT INFORMATION
  Report Type: Report from Study
  Country: US (occurrence: US)
  Receive Date: 20151118
  Receipt Date: 20160125
  Transmission Date: 20160525
  Serious: Yes (Hospitalization, Other)
  Sender: FDA-Public Use
  Company Number: PHEH2015US023816

PATIENT
  Age: 51 Year
  Sex: Male
  Weight: 199.9 kg

DRUGS (2)
  1. COUMADINE [Concomitant]
     Active Substance: WARFARIN SODIUM
     Indication: PRODUCT USED FOR UNKNOWN INDICATION
     Dosage: 1 O 1/2 TABLETS
     Route: 065
     Dates: start: 20151105
  2. EXTAVIA [Suspect]
     Active Substance: INTERFERON BETA-1B
     Indication: MULTIPLE SCLEROSIS
     Dosage: 0.25 MG(1 ML), QOD
     Route: 058
     Dates: start: 20150904

REACTIONS (8)
  - Pulmonary oedema [Unknown]
  - Hyperhidrosis [Unknown]
  - Cardiac failure congestive [Recovering/Resolving]
  - Fatigue [Unknown]
  - Palpitations [Unknown]
  - Wheezing [Unknown]
  - Dyspnoea [Unknown]
  - Pain [Unknown]

NARRATIVE: CASE EVENT DATE: 20151109
